FAERS Safety Report 4939849-5 (Version None)
Quarter: 2006Q1

REPORT INFORMATION
  Report Type: 
  Country: None (occurrence: None)
  Receive Date: 20060310
  Receipt Date: 20051216
  Transmission Date: 20060701
  Serious: Yes (Disabling)
  Sender: FDA-Public Use
  Company Number: FR-SANOFI-SYNTHELABO-A02200503324

PATIENT
  Age: 67 Year
  Sex: Female
  Weight: 60 kg

DRUGS (2)
  1. PLAQUENIL [Suspect]
     Indication: RHEUMATOID ARTHRITIS
     Route: 048
     Dates: start: 20010101
  2. CORTANCYL [Concomitant]
     Dosage: FROM 10 TO 1 MG DAILY
     Route: 048
     Dates: start: 20010101, end: 20021108

REACTIONS (6)
  - MACULOPATHY [None]
  - METAMORPHOPSIA [None]
  - SJOGREN'S SYNDROME [None]
  - THROMBOCYTHAEMIA [None]
  - VISUAL ACUITY REDUCED [None]
  - VISUAL DISTURBANCE [None]
